FAERS Safety Report 13396778 (Version 1)
Quarter: 2017Q2

REPORT INFORMATION
  Report Type: Spontaneous
  Country: PL (occurrence: PL)
  Receive Date: 20170403
  Receipt Date: 20170403
  Transmission Date: 20170830
  Serious: Yes (Other)
  Sender: FDA-Public Use
  Company Number: PL-ELI_LILLY_AND_COMPANY-PL201703012690

PATIENT
  Age: 82 Year
  Sex: Female

DRUGS (1)
  1. ERBITUX [Suspect]
     Active Substance: CETUXIMAB
     Indication: TONSIL CANCER
     Dosage: UNK UNK, UNKNOWN
     Route: 065

REACTIONS (4)
  - Anaphylactic reaction [Unknown]
  - Syncope [Unknown]
  - Dyspnoea [Unknown]
  - Arrhythmia [Unknown]
